FAERS Safety Report 10093798 (Version 1)
Quarter: 2014Q2

REPORT INFORMATION
  Report Type: Spontaneous
  Country: US (occurrence: US)
  Receive Date: 20140421
  Receipt Date: 20140421
  Transmission Date: 20141212
  Serious: No
  Sender: FDA-Public Use
  Company Number: US-SANOFI-AVENTIS-2013SA082553

PATIENT
  Age: 86 Year
  Sex: Female

DRUGS (8)
  1. ALLEGRA [Suspect]
     Indication: HYPERSENSITIVITY
     Route: 048
     Dates: start: 2013
  2. CARVEDILOL [Concomitant]
  3. MONOPRIL [Concomitant]
  4. ASPIRIN [Concomitant]
  5. PACERONE [Concomitant]
  6. XANAX [Concomitant]
  7. PLETAL [Concomitant]
  8. LEVOTHYROXINE [Concomitant]

REACTIONS (1)
  - Hypertension [Not Recovered/Not Resolved]
